FAERS Safety Report 7347304-0 (Version None)
Quarter: 2011Q1

REPORT INFORMATION
  Report Type: 
  Country: None (occurrence: None)
  Receive Date: 20110311
  Receipt Date: 20110304
  Transmission Date: 20110831
  Serious: Yes (Hospitalization)
  Sender: FDA-Public Use
  Company Number: FI-ROCHE-671241

PATIENT
  Sex: Female
  Weight: 62 kg

DRUGS (6)
  1. ROACTEMRA [Suspect]
     Dosage: WAS PUT ON HOLD
     Route: 042
     Dates: start: 20101005, end: 20101119
  2. PREDNISOLONE [Concomitant]
     Indication: RHEUMATOID ARTHRITIS
     Route: 048
  3. ROACTEMRA [Suspect]
     Indication: RHEUMATOID ARTHRITIS
     Dosage: FORM: INFUSION,
     Route: 042
     Dates: start: 20091016
  4. ROACTEMRA [Suspect]
     Dosage: DOSE: VARYING
     Route: 042
  5. ROACTEMRA [Suspect]
     Dosage: DOSE DISCONTINUED
     Route: 042
     Dates: start: 20110204
  6. ROACTEMRA [Suspect]
     Route: 042
     Dates: start: 20110105

REACTIONS (8)
  - OSTEOMYELITIS [None]
  - ENDOMETRIOSIS [None]
  - ABDOMINAL INFECTION [None]
  - URINARY TRACT INFECTION [None]
  - CELLULITIS [None]
  - NEUTROPENIA [None]
  - DEVICE RELATED INFECTION [None]
  - LEUKOPENIA [None]
